FAERS Safety Report 8427658-4 (Version None)
Quarter: 2012Q2

REPORT INFORMATION
  Report Type: 
  Country: None (occurrence: None)
  Receive Date: 20120611
  Receipt Date: 20120529
  Transmission Date: 20120825
  Serious: Yes (Hospitalization)
  Sender: FDA-Public Use
  Company Number: US-ACTELION-A-NJ2011-51855

PATIENT

DRUGS (6)
  1. TRACLEER [Suspect]
     Indication: PULMONARY ARTERIAL HYPERTENSION
     Dosage: UNK
     Route: 048
     Dates: start: 20100316
  2. VENTAVIS [Suspect]
     Indication: PULMONARY ARTERIAL HYPERTENSION
     Dosage: UNK
     Route: 055
     Dates: start: 20110119
  3. REVATIO [Concomitant]
  4. COUMADIN [Concomitant]
  5. TYVASO [Concomitant]
  6. OXYGEN [Concomitant]

REACTIONS (11)
  - PAIN IN EXTREMITY [None]
  - FLUSHING [None]
  - ARTHRITIS [None]
  - OEDEMA PERIPHERAL [None]
  - CONTUSION [None]
  - FALL [None]
  - RIB FRACTURE [None]
  - BACK PAIN [None]
  - EXCORIATION [None]
  - CHEST DISCOMFORT [None]
  - HEADACHE [None]
